FAERS Safety Report 13701967 (Version 1)
Quarter: 2017Q2

REPORT INFORMATION
  Report Type: Spontaneous
  Country: US (occurrence: US)
  Receive Date: 20170629
  Receipt Date: 20170629
  Transmission Date: 20170830
  Serious: Yes (Other)
  Sender: FDA-Public Use
  Company Number: US-IPSEN BIOPHARMACEUTICALS, INC.-2015-3797

PATIENT
  Sex: Female
  Weight: 16.3 kg

DRUGS (2)
  1. INCRELEX [Suspect]
     Active Substance: MECASERMIN
     Indication: INSULIN-LIKE GROWTH FACTOR DECREASED
     Route: 058
     Dates: start: 20090601, end: 2013
  2. INCRELEX [Suspect]
     Active Substance: MECASERMIN
     Route: 058
     Dates: start: 2014

REACTIONS (2)
  - Tonsillar hypertrophy [Unknown]
  - Snoring [Unknown]
